FAERS Safety Report 6863548-6 (Version None)
Quarter: 2010Q3

REPORT INFORMATION
  Report Type: 
  Country: None (occurrence: None)
  Receive Date: 20100721
  Receipt Date: 20080304
  Transmission Date: 20110219
  Serious: No
  Sender: FDA-Public Use
  Company Number: US-PFIZER INC-2008022649

PATIENT
  Sex: Female
  Weight: 58.1 kg

DRUGS (6)
  1. CHANTIX [Suspect]
     Indication: SMOKING CESSATION THERAPY
     Dates: start: 20080201
  2. MULTI-VITAMINS [Concomitant]
  3. CALCIUM [Concomitant]
  4. TOPROL-XL [Concomitant]
  5. LOVASTATIN [Concomitant]
  6. ALL OTHER THERAPEUTIC PRODUCTS [Concomitant]

REACTIONS (5)
  - FEELING ABNORMAL [None]
  - FLATULENCE [None]
  - MALAISE [None]
  - NAUSEA [None]
  - UNEVALUABLE EVENT [None]
